FAERS Safety Report 8581402-9 (Version None)
Quarter: 2012Q3

REPORT INFORMATION
  Report Type: 
  Country: None (occurrence: None)
  Receive Date: 20120727
  Receipt Date: 20120716
  Transmission Date: 20120928
  Serious: Yes (Hospitalization)
  Sender: FDA-Public Use
  Company Number: 136703

PATIENT
  Age: 74 Year
  Sex: Male
  Weight: 100 kg

DRUGS (1)
  1. LEUCOVORIN CALCIUM [Suspect]
     Indication: COLORECTAL CANCER METASTATIC
     Dosage: 400MG/M2 IV ON DAYS 1 + 2 EVERY 14 DAYS
     Route: 042
     Dates: start: 20120405

REACTIONS (7)
  - HEPATIC FAILURE [None]
  - ASCITES [None]
  - GLOMERULAR FILTRATION RATE DECREASED [None]
  - TOXICITY TO VARIOUS AGENTS [None]
  - FLUID RETENTION [None]
  - GENERAL PHYSICAL HEALTH DETERIORATION [None]
  - CONDITION AGGRAVATED [None]
